FAERS Safety Report 7298308-8 (Version None)
Quarter: 2011Q1

REPORT INFORMATION
  Report Type: 
  Country: None (occurrence: None)
  Receive Date: 20110217
  Receipt Date: 20100407
  Transmission Date: 20110831
  Serious: No
  Sender: FDA-Public Use
  Company Number: US-PFIZER INC-2009313623

PATIENT
  Sex: Female

DRUGS (3)
  1. DARVOCET-N 100 [Concomitant]
     Dosage: UNK
  2. IBUPROFEN [Concomitant]
     Dosage: UNK
  3. XALATAN [Suspect]
     Dosage: UNK
     Dates: start: 20091130

REACTIONS (2)
  - EYE IRRITATION [None]
  - HYPERTENSION [None]
